FAERS Safety Report 9880086 (Version 1)
Quarter: 2014Q1

REPORT INFORMATION
  Report Type: Spontaneous
  Country: US (occurrence: US)
  Receive Date: 20140207
  Receipt Date: 20140207
  Transmission Date: 20141002
  Serious: No
  Sender: FDA-Public Use
  Company Number: US-BIOGENIDEC-2014BI011903

PATIENT
  Sex: Female

DRUGS (1)
  1. AVONEX [Suspect]
     Indication: MULTIPLE SCLEROSIS
     Route: 030
     Dates: start: 20100511

REACTIONS (7)
  - General symptom [Unknown]
  - Memory impairment [Unknown]
  - Drug dose omission [Unknown]
  - Cognitive disorder [Unknown]
  - Skin induration [Unknown]
  - Injury associated with device [Unknown]
  - Fatigue [Unknown]
